FAERS Safety Report 9399234 (Version 1)
Quarter: 2013Q3

REPORT INFORMATION
  Report Type: Report from Study
  Country: FR (occurrence: FR)
  Receive Date: 20130715
  Receipt Date: 20130715
  Transmission Date: 20140515
  Serious: Yes (Hospitalization)
  Sender: FDA-Public Use
  Company Number: FR-ROCHE-1246509

PATIENT
  Age: 71 Year
  Sex: Female
  Weight: 59 kg

DRUGS (10)
  1. TOCILIZUMAB [Suspect]
     Indication: RHEUMATOID ARTHRITIS
     Route: 041
     Dates: start: 20120119
  2. TOCILIZUMAB [Suspect]
     Route: 041
     Dates: start: 20120223
  3. TOCILIZUMAB [Suspect]
     Route: 041
     Dates: start: 20120322
  4. TOCILIZUMAB [Suspect]
     Route: 041
     Dates: start: 20120420
  5. TOCILIZUMAB [Suspect]
     Route: 041
     Dates: start: 20120515
  6. TOCILIZUMAB [Suspect]
     Route: 041
     Dates: start: 20120809
  7. CORTANCYL [Concomitant]
     Route: 065
     Dates: start: 2000
  8. FLECAINE [Concomitant]
     Route: 065
  9. EUPRESSYL [Concomitant]
     Route: 065
  10. OGAST [Concomitant]
     Route: 065

REACTIONS (2)
  - Knee arthroplasty [Recovered/Resolved]
  - Bronchitis [Recovered/Resolved]
